FAERS Safety Report 11533091 (Version 1)
Quarter: 2015Q3

REPORT INFORMATION
  Report Type: Spontaneous
  Country: None (occurrence: US)
  Receive Date: 20150921
  Receipt Date: 20150921
  Transmission Date: 20151125
  Serious: No
  Sender: FDA-Public Use
  Company Number: US-MEDAC PHARMA, INC.-1042163

PATIENT
  Age: 40 Year
  Sex: Female
  Weight: 67.27 kg

DRUGS (5)
  1. RASUVO [Suspect]
     Active Substance: METHOTREXATE SODIUM
     Indication: POLYARTHRITIS
     Route: 058
     Dates: start: 201504
  2. FOLIC ACID. [Concomitant]
     Active Substance: FOLIC ACID
  3. HUMIRA [Concomitant]
     Active Substance: ADALIMUMAB
  4. WELLBUTRIN [Concomitant]
     Active Substance: BUPROPION HYDROCHLORIDE
  5. DUEXIS [Concomitant]
     Active Substance: FAMOTIDINE\IBUPROFEN

REACTIONS (1)
  - Alopecia [Not Recovered/Not Resolved]
